FAERS Safety Report 5387227-X (Version None)
Quarter: 2007Q3

REPORT INFORMATION
  Report Type: 
  Country: None (occurrence: None)
  Receive Date: 20070716
  Receipt Date: 20070706
  Transmission Date: 20080115
  Serious: Yes (Hospitalization, Other)
  Sender: FDA-Public Use
  Company Number: HQWYE230306JAN06

PATIENT
  Sex: Male

DRUGS (26)
  1. SIROLIMUS [Suspect]
     Indication: PROPHYLAXIS AGAINST TRANSPLANT REJECTION
     Route: 048
     Dates: start: 20051123, end: 20060104
  2. PREDNISONE [Suspect]
     Indication: PROPHYLAXIS AGAINST TRANSPLANT REJECTION
     Route: 048
     Dates: start: 20051003, end: 20050101
  3. PREDNISONE [Suspect]
     Route: 065
     Dates: start: 20060107, end: 20060101
  4. PREDNISONE [Suspect]
     Route: 048
     Dates: start: 20051123
  5. PREDNISONE [Suspect]
     Route: 048
     Dates: start: 20060111, end: 20060101
  6. PREDNISONE [Suspect]
     Route: 048
     Dates: start: 20060201, end: 20060201
  7. PREDNISONE [Suspect]
     Route: 048
     Dates: start: 20060225, end: 20060101
  8. PREDNISONE [Suspect]
     Route: 048
     Dates: start: 20060324, end: 20060101
  9. PREDNISONE [Suspect]
     Route: 048
     Dates: start: 20060419
  10. ACYCLOVIR [Concomitant]
     Route: 065
     Dates: start: 20051123
  11. BACTRIM [Concomitant]
     Route: 065
     Dates: start: 20051031
  12. PEPCID [Concomitant]
     Route: 065
     Dates: start: 20050928
  13. METFORMIN HCL [Concomitant]
     Dosage: NOT SPECIFIED
     Dates: start: 20050112
  14. VALCYTE [Concomitant]
     Dosage: NOT SPECIFIED
     Dates: start: 20051231
  15. PREVACID [Concomitant]
     Dosage: NOT SPECIFIED
     Dates: start: 20051031, end: 20060411
  16. ULTRAM [Concomitant]
     Dosage: NOT SPECIFIED
  17. INSULIN [Concomitant]
     Dosage: NOT SPECIFIED
  18. PROTONIX [Concomitant]
     Dosage: NOT SPECIFIED
  19. ATARAX [Concomitant]
  20. MYCOPHENOLATE MOFETIL [Suspect]
     Indication: PROPHYLAXIS AGAINST TRANSPLANT REJECTION
     Route: 048
     Dates: start: 20051123, end: 20051221
  21. MYCOPHENOLATE MOFETIL [Suspect]
     Route: 048
     Dates: start: 20051221, end: 20060118
  22. TACROLIMUS [Suspect]
     Indication: PROPHYLAXIS AGAINST TRANSPLANT REJECTION
     Route: 048
     Dates: start: 20060105, end: 20060101
  23. TACROLIMUS [Suspect]
     Route: 048
     Dates: start: 20060107, end: 20060101
  24. TACROLIMUS [Suspect]
     Route: 048
     Dates: start: 20060111
  25. TACROLIMUS [Suspect]
     Route: 048
     Dates: start: 20060224
  26. TACROLIMUS [Suspect]
     Route: 048
     Dates: start: 20060308, end: 20060418

REACTIONS (9)
  - ABDOMINAL PAIN UPPER [None]
  - BILE DUCT OBSTRUCTION [None]
  - CHOLANGITIS [None]
  - CLOSTRIDIUM DIFFICILE COLITIS [None]
  - COUGH [None]
  - DYSPNOEA [None]
  - LIVER TRANSPLANT REJECTION [None]
  - THROMBOSIS [None]
  - UPPER RESPIRATORY TRACT INFECTION [None]
